FAERS Safety Report 11584547 (Version 2)
Quarter: 2015Q4

REPORT INFORMATION
  Report Type: Spontaneous
  Country: GB (occurrence: GB)
  Receive Date: 20151001
  Receipt Date: 20151029
  Transmission Date: 20160304
  Serious: Yes (Hospitalization, Disabling)
  Sender: FDA-Public Use
  Company Number: PHHY2015GB115204

PATIENT
  Age: 16 Year
  Sex: Male
  Weight: 47 kg

DRUGS (2)
  1. CLINDAMYCIN [Suspect]
     Active Substance: CLINDAMYCIN\CLINDAMYCIN PHOSPHATE
     Indication: PLEURAL EFFUSION
     Route: 041
     Dates: start: 20150820, end: 20150908
  2. CEFOTAXIME [Suspect]
     Active Substance: CEFOTAXIME SODIUM
     Indication: PLEURAL EFFUSION
     Dosage: 2300 MG, UNK
     Route: 041
     Dates: start: 20150821, end: 20150908

REACTIONS (5)
  - Eosinophil count increased [Not Recovered/Not Resolved]
  - Hepatic enzyme increased [Recovering/Resolving]
  - Urticaria [Recovering/Resolving]
  - Face oedema [Recovering/Resolving]
  - Renal impairment [Recovered/Resolved]

NARRATIVE: CASE EVENT DATE: 20150907
